FAERS Safety Report 13533385 (Version 1)
Quarter: 2017Q2

REPORT INFORMATION
  Report Type: Report from Study
  Country: US (occurrence: US)
  Receive Date: 20170510
  Receipt Date: 20170510
  Transmission Date: 20170830
  Serious: Yes (Hospitalization, Other)
  Sender: FDA-Public Use
  Company Number: US-ACTELION-A-US2016-138207

PATIENT
  Age: 61 Year
  Sex: Female

DRUGS (18)
  1. CELEBREX [Concomitant]
     Active Substance: CELECOXIB
  2. TEKTURNA [Concomitant]
     Active Substance: ALISKIREN HEMIFUMARATE
  3. POTASSIUM GLUCONATE [Concomitant]
     Active Substance: POTASSIUM GLUCONATE
  4. AMLODIPINE [Concomitant]
     Active Substance: AMLODIPINE BESYLATE
  5. LASIX [Concomitant]
     Active Substance: FUROSEMIDE
  6. TYLENOL [Concomitant]
     Active Substance: ACETAMINOPHEN
  7. OPSUMIT [Suspect]
     Active Substance: MACITENTAN
     Indication: PULMONARY ARTERIAL HYPERTENSION
     Dosage: 10 MG, UNK
     Route: 048
     Dates: start: 20150611
  8. ADCIRCA [Concomitant]
     Active Substance: TADALAFIL
  9. LISINOPRIL. [Concomitant]
     Active Substance: LISINOPRIL
  10. METHOTREXATE. [Concomitant]
     Active Substance: METHOTREXATE
  11. UPTRAVI [Suspect]
     Active Substance: SELEXIPAG
     Dosage: 1200 MCG, BID
     Route: 048
     Dates: start: 20160422
  12. ADVAIR HFA [Concomitant]
     Active Substance: FLUTICASONE PROPIONATE\SALMETEROL XINAFOATE
  13. UPTRAVI [Suspect]
     Active Substance: SELEXIPAG
     Dosage: UNK
     Route: 048
     Dates: start: 20160227
  14. IMODIUM [Concomitant]
     Active Substance: LOPERAMIDE HYDROCHLORIDE
  15. MAGNESIUM [Concomitant]
     Active Substance: MAGNESIUM
  16. UPTRAVI [Suspect]
     Active Substance: SELEXIPAG
     Indication: PULMONARY ARTERIAL HYPERTENSION
     Dosage: 1600 MCG, BID
     Route: 048
     Dates: start: 20160422
  17. PRILOSEC [Concomitant]
     Active Substance: OMEPRAZOLE MAGNESIUM
  18. CALCIUM CITRATE [Concomitant]
     Active Substance: CALCIUM CITRATE

REACTIONS (9)
  - Fracture [Not Recovered/Not Resolved]
  - Muscle spasms [Unknown]
  - Limb discomfort [Not Recovered/Not Resolved]
  - Joint arthroplasty [Unknown]
  - Pain in jaw [Unknown]
  - Dyspnoea [Unknown]
  - Diarrhoea [Unknown]
  - Limb injury [Not Recovered/Not Resolved]
  - Arthritis [Not Recovered/Not Resolved]

NARRATIVE: CASE EVENT DATE: 20160713
